FAERS Safety Report 4563426-1 (Version None)
Quarter: 2005Q1

REPORT INFORMATION
  Report Type: 
  Country: None (occurrence: None)
  Receive Date: 20050128
  Receipt Date: 20040427
  Transmission Date: 20050727
  Serious: Yes (Other)
  Sender: FDA-Public Use
  Company Number: US-GLAXOSMITHKLINE-A0509072A

PATIENT
  Age: 37 Year
  Sex: Female

DRUGS (6)
  1. WELLBUTRIN [Suspect]
     Dates: start: 20031201, end: 20040118
  2. SYNTHROID [Concomitant]
     Indication: DRUG USE FOR UNKNOWN INDICATION
  3. LAMICTAL [Concomitant]
     Indication: DRUG USE FOR UNKNOWN INDICATION
  4. ZYPREXA [Concomitant]
     Indication: DRUG USE FOR UNKNOWN INDICATION
  5. PROZAC [Concomitant]
     Indication: DRUG USE FOR UNKNOWN INDICATION
  6. UNSPECIFIED INHALER [Concomitant]
     Indication: ASTHMA
     Route: 055

REACTIONS (1)
  - CONVULSION [None]
